FAERS Safety Report 4296784-6 (Version None)
Quarter: 2004Q1

REPORT INFORMATION
  Report Type: 
  Country: None (occurrence: None)
  Receive Date: 20040217
  Receipt Date: 20040206
  Transmission Date: 20041129
  Serious: Yes (Other)
  Sender: FDA-Public Use
  Company Number: PHRM2004FR00798

PATIENT
  Age: 50 Year
  Sex: Male

DRUGS (1)
  1. LESCOL [Suspect]
     Dosage: 80 MG, UNK
     Route: 048
     Dates: start: 20030101

REACTIONS (2)
  - SURGERY [None]
  - TENDON RUPTURE [None]
